FAERS Safety Report 7266462-X (Version None)
Quarter: 2011Q1

REPORT INFORMATION
  Report Type: 
  Country: None (occurrence: None)
  Receive Date: 20110131
  Receipt Date: 20110117
  Transmission Date: 20110831
  Serious: Yes (Hospitalization)
  Sender: FDA-Public Use
  Company Number: JP-ELI_LILLY_AND_COMPANY-JP201101003689

PATIENT
  Age: 59 Year
  Sex: Female

DRUGS (1)
  1. HUMALOG [Suspect]
     Dosage: UNK, UNKNOWN
     Route: 058

REACTIONS (2)
  - HYPOTHERMIA [None]
  - HYPOGLYCAEMIC COMA [None]
